FAERS Safety Report 19792567 (Version 1)
Quarter: 2021Q3

REPORT INFORMATION
  Report Type: Spontaneous
  Country: US (occurrence: US)
  Receive Date: 20210906
  Receipt Date: 20210906
  Transmission Date: 20211014
  Serious: Yes (Other)
  Sender: FDA-Public Use
  Company Number: US-ORGANON-O2108USA002416

PATIENT
  Sex: Female

DRUGS (1)
  1. COZAAR [Suspect]
     Active Substance: LOSARTAN POTASSIUM
     Dosage: 1 TABLET DAILY (QD)
     Route: 048

REACTIONS (4)
  - Hypertensive crisis [Unknown]
  - Headache [Unknown]
  - Lacrimation increased [Unknown]
  - Palpitations [Unknown]
